FAERS Safety Report 7971390-8 (Version None)
Quarter: 2011Q4

REPORT INFORMATION
  Report Type: 
  Country: None (occurrence: None)
  Receive Date: 20111212
  Receipt Date: 20111128
  Transmission Date: 20120403
  Serious: Yes (Hospitalization)
  Sender: FDA-Public Use
  Company Number: JP-MERCK-0910USA01692

PATIENT
  Age: 25 Year
  Sex: Female

DRUGS (3)
  1. COZAAR [Suspect]
     Indication: LUPUS NEPHRITIS
     Route: 048
     Dates: start: 19990101
  2. COZAAR [Suspect]
     Indication: SYSTEMIC LUPUS ERYTHEMATOSUS
     Route: 048
     Dates: start: 19990101
  3. PREDNISOLONE [Concomitant]
     Indication: LUPUS NEPHRITIS
     Route: 048

REACTIONS (4)
  - RENAL IMPAIRMENT [None]
  - BLOOD ANTIDIURETIC HORMONE INCREASED [None]
  - OLIGOHYDRAMNIOS [None]
  - MATERNAL EXPOSURE DURING PREGNANCY [None]
